FAERS Safety Report 8525222-X (Version None)
Quarter: 2012Q3

REPORT INFORMATION
  Report Type: 
  Country: None (occurrence: None)
  Receive Date: 20120720
  Receipt Date: 20120716
  Transmission Date: 20120928
  Serious: Yes (Hospitalization)
  Sender: FDA-Public Use
  Company Number: PHEH2012US009880

PATIENT
  Sex: Female
  Weight: 61.6 kg

DRUGS (3)
  1. LEVOTHYROXINE SODIUM [Concomitant]
     Indication: HYPERTHYROIDISM
     Route: 048
  2. TASIGNA [Suspect]
     Indication: CHRONIC MYELOID LEUKAEMIA
     Dosage: 300 MG IN THE MORNING AND 150 MG IN THE EVENING
     Route: 048
     Dates: start: 20111001, end: 20120501
  3. ATENOLOL [Concomitant]
     Indication: HYPERTENSION
     Route: 048

REACTIONS (10)
  - LEFT VENTRICULAR HYPERTROPHY [None]
  - EJECTION FRACTION DECREASED [None]
  - RIGHT VENTRICULAR DYSFUNCTION [None]
  - ATRIAL FIBRILLATION [None]
  - CHEST PAIN [None]
  - LEFT VENTRICULAR DYSFUNCTION [None]
  - AORTIC VALVE INCOMPETENCE [None]
  - MITRAL VALVE INCOMPETENCE [None]
  - CARDIAC FAILURE CONGESTIVE [None]
  - DYSPNOEA [None]
